FAERS Safety Report 7465411-9 (Version None)
Quarter: 2011Q2

REPORT INFORMATION
  Report Type: 
  Country: None (occurrence: None)
  Receive Date: 20110509
  Receipt Date: 20100917
  Transmission Date: 20111010
  Serious: No
  Sender: FDA-Public Use
  Company Number: US-BAUSCH-2010BL005250

PATIENT

DRUGS (1)
  1. LOTEMAX [Suspect]
     Indication: PINGUECULA
     Route: 047

REACTIONS (1)
  - DRUG EFFECT DECREASED [None]
